FAERS Safety Report 6646846-0 (Version None)
Quarter: 2010Q1

REPORT INFORMATION
  Report Type: 
  Country: None (occurrence: None)
  Receive Date: 20100323
  Receipt Date: 20100311
  Transmission Date: 20100710
  Serious: Yes (Hospitalization, Other)
  Sender: FDA-Public Use
  Company Number: JP-PFIZER INC-2010033106

PATIENT
  Age: 70 Year
  Sex: Male

DRUGS (1)
  1. GABAPEN [Suspect]
     Dosage: UNK
     Dates: start: 20091001

REACTIONS (2)
  - ALTERED STATE OF CONSCIOUSNESS [None]
  - CEREBRAL INFARCTION [None]
